FAERS Safety Report 17281543 (Version 1)
Quarter: 2020Q1

REPORT INFORMATION
  Report Type: Spontaneous
  Country: US (occurrence: US)
  Receive Date: 20191227
  Receipt Date: 20191227
  Transmission Date: 20200409
  Serious: Yes (Hospitalization)
  Sender: FDA-Public Use
  Company Number: None

PATIENT
  Age: 64 Year
  Sex: Male
  Weight: 154 kg

DRUGS (2)
  1. ACETAMINOPHEN/HYDROCODONE (HYDROCODONE 10MG/ACETAMINOPHEN 300MG TAB) [Suspect]
     Active Substance: ACETAMINOPHEN\HYDROCODONE
     Indication: INTENTIONAL OVERDOSE
     Dates: start: 20190908, end: 20190908
  2. PREDNISONE (PREDNISONE 10MG TAB) [Suspect]
     Active Substance: PREDNISONE
     Indication: INTENTIONAL OVERDOSE
     Dates: start: 20190908, end: 20190908

REACTIONS (1)
  - Respiratory arrest [None]

NARRATIVE: CASE EVENT DATE: 20190904
